FAERS Safety Report 5167401-8 (Version None)
Quarter: 2006Q4

REPORT INFORMATION
  Report Type: 
  Country: None (occurrence: None)
  Receive Date: 20061130
  Receipt Date: 20061117
  Transmission Date: 20070319
  Serious: Yes (Other)
  Sender: FDA-Public Use
  Company Number: 2006143611

PATIENT

DRUGS (1)
  1. LYRICA [Suspect]
     Indication: BACK PAIN
     Dosage: 150 MG, ORAL
     Route: 048

REACTIONS (7)
  - AFFECTIVE DISORDER [None]
  - AGITATION [None]
  - DEPRESSION [None]
  - DISTURBANCE IN ATTENTION [None]
  - IMPAIRED WORK ABILITY [None]
  - INSOMNIA [None]
  - POOR QUALITY SLEEP [None]
